FAERS Safety Report 13502624 (Version 1)
Quarter: 2017Q2

REPORT INFORMATION
  Report Type: Spontaneous
  Country: US (occurrence: US)
  Receive Date: 20170501
  Receipt Date: 20170501
  Transmission Date: 20170830
  Serious: No
  Sender: FDA-Public Use
  Company Number: None

PATIENT
  Age: 58 Year
  Sex: Female
  Weight: 56.25 kg

DRUGS (4)
  1. WOMEN 50+ MULTI-VITAMINS [Concomitant]
  2. RESTASIS [Suspect]
     Active Substance: CYCLOSPORINE
     Indication: DRY EYE
     Dosage: QUANTITY:1 DROP(S);?
     Route: 047
     Dates: start: 20170417, end: 20170501
  3. ESTRADIAL [Concomitant]
  4. BIOTIN [Concomitant]
     Active Substance: BIOTIN

REACTIONS (14)
  - Pain [None]
  - Foreign body sensation in eyes [None]
  - Lower respiratory tract congestion [None]
  - Lymph node pain [None]
  - Eye pain [None]
  - Pruritus [None]
  - Vision blurred [None]
  - Photosensitivity reaction [None]
  - Ocular hyperaemia [None]
  - Lacrimation increased [None]
  - Upper-airway cough syndrome [None]
  - Oropharyngeal pain [None]
  - Musculoskeletal stiffness [None]
  - Headache [None]

NARRATIVE: CASE EVENT DATE: 20170417
